FAERS Safety Report 6757786-0 (Version None)
Quarter: 2010Q2

REPORT INFORMATION
  Report Type: 
  Country: None (occurrence: None)
  Receive Date: 20100604
  Receipt Date: 20100604
  Transmission Date: 20101027
  Serious: Yes (Hospitalization)
  Sender: FDA-Public Use
  Company Number: None

PATIENT
  Age: 63 Year
  Sex: Female
  Weight: 47 kg

DRUGS (1)
  1. ONDANSETRON IN 5% DEXTROSE (ZOFRAN/DEXTROSE) [Suspect]
     Indication: ADJUVANT THERAPY
     Dosage: 32 MG/50 ML ONE DOSE IV DRIP
     Route: 041
     Dates: start: 20100520, end: 20100520

REACTIONS (2)
  - PNEUMONIA [None]
  - PYREXIA [None]
